FAERS Safety Report 12725049 (Version 1)
Quarter: 2016Q3

REPORT INFORMATION
  Report Type: Report from Study
  Country: US (occurrence: US)
  Receive Date: 20160908
  Receipt Date: 20160908
  Transmission Date: 20161109
  Serious: Yes (Hospitalization)
  Sender: FDA-Public Use
  Company Number: US-BIOGEN-2014BI120189

PATIENT
  Age: 42 Year
  Sex: Female
  Weight: 64.01 kg

DRUGS (2)
  1. TYSABRI [Suspect]
     Active Substance: NATALIZUMAB
     Indication: MULTIPLE SCLEROSIS
     Route: 042
     Dates: start: 20130930, end: 201410
  2. TYSABRI [Suspect]
     Active Substance: NATALIZUMAB
     Route: 042
     Dates: start: 201501, end: 20150910

REACTIONS (8)
  - Lymphoedema [Not Recovered/Not Resolved]
  - Meningioma [Recovered/Resolved]
  - Catheter site pain [Not Recovered/Not Resolved]
  - Feeling cold [Recovered/Resolved]
  - Central venous catheterisation [Recovered/Resolved]
  - Migraine [Recovered/Resolved]
  - Asthenia [Recovered/Resolved]
  - Contusion [Recovered/Resolved]

NARRATIVE: CASE EVENT DATE: 201310
